FAERS Safety Report 11273570 (Version 1)
Quarter: 2015Q3

REPORT INFORMATION
  Report Type: Spontaneous
  Country: US (occurrence: None)
  Receive Date: 20150714
  Receipt Date: 20150714
  Transmission Date: 20151125
  Serious: No
  Sender: FDA-Public Use
  Company Number: None

PATIENT
  Sex: Female

DRUGS (2)
  1. MAKENA [Suspect]
     Active Substance: HYDROXYPROGESTERONE CAPROATE
     Indication: PREMATURE LABOUR
     Dates: start: 20150609
  2. NITROFURANTIN [Concomitant]
     Active Substance: NITROFURANTOIN

REACTIONS (2)
  - Injection site reaction [None]
  - Injection site pruritus [None]
